FAERS Safety Report 7900865-2 (Version None)
Quarter: 2011Q4

REPORT INFORMATION
  Report Type: 
  Country: None (occurrence: None)
  Receive Date: 20111108
  Receipt Date: 20111027
  Transmission Date: 20120403
  Serious: Yes (Hospitalization)
  Sender: FDA-Public Use
  Company Number: US-BAYER-2011-053622

PATIENT
  Age: 20 Year
  Sex: Female
  Weight: 101.13 kg

DRUGS (5)
  1. YAZ [Suspect]
     Indication: ORAL CONTRACEPTION
     Dosage: UNK
     Dates: start: 20070101, end: 20110101
  2. MORPHINE [Concomitant]
  3. PEPCID [Concomitant]
  4. PERCOCET-5 [Concomitant]
  5. ZOFRAN [Concomitant]

REACTIONS (3)
  - CHOLECYSTITIS CHRONIC [None]
  - GALLBLADDER DISORDER [None]
  - BILIARY COLIC [None]
